FAERS Safety Report 4816883-7 (Version None)
Quarter: 2005Q4

REPORT INFORMATION
  Report Type: 
  Country: None (occurrence: None)
  Receive Date: 20051031
  Receipt Date: 20051031
  Transmission Date: 20060501
  Serious: Yes (Hospitalization)
  Sender: FDA-Public Use
  Company Number: None

PATIENT
  Age: 54 Year
  Sex: Male

DRUGS (10)
  1. FUROSEMIDE [Suspect]
     Indication: HYPERTENSION
     Dosage: 20 MG QD
  2. LISINOPRIL [Suspect]
     Indication: HYPERTENSION
     Dosage: 20 MG QD
  3. METOPROLOL [Concomitant]
  4. TRAMADOL [Concomitant]
  5. FELODIPINE [Concomitant]
  6. ZOCOR [Concomitant]
  7. CLONIDINE [Concomitant]
  8. METOLAZONE [Concomitant]
  9. HUMULIN 70/30 [Concomitant]
  10. POTASSIUM CHLORIDE [Concomitant]

REACTIONS (1)
  - RENAL FAILURE ACUTE [None]
